FAERS Safety Report 19377475 (Version 1)
Quarter: 2021Q2

REPORT INFORMATION
  Report Type: Spontaneous
  Country: AR (occurrence: AR)
  Receive Date: 20210604
  Receipt Date: 20210604
  Transmission Date: 20210717
  Serious: Yes (Other)
  Sender: FDA-Public Use
  Company Number: AR-MYLANLABS-2021M1031233

PATIENT
  Age: 21 Year
  Sex: Female

DRUGS (5)
  1. LAPENAX [Suspect]
     Active Substance: CLOZAPINE
     Indication: AUTISM SPECTRUM DISORDER
     Dosage: UNK
     Dates: start: 20210302, end: 20210526
  2. OLANZAPINE. [Concomitant]
     Active Substance: OLANZAPINE
     Dosage: UNK
  3. LAPENAX [Suspect]
     Active Substance: CLOZAPINE
     Indication: PSYCHOTIC DISORDER
  4. LAPENAX [Suspect]
     Active Substance: CLOZAPINE
     Indication: INTELLECTUAL DISABILITY
  5. LEVOMEPROMAZINE [Concomitant]
     Active Substance: LEVOMEPROMAZINE
     Dosage: UNK

REACTIONS (3)
  - Lymphocyte count increased [Unknown]
  - Neutropenia [Not Recovered/Not Resolved]
  - Red blood cell count decreased [Unknown]

NARRATIVE: CASE EVENT DATE: 20210521
